FAERS Safety Report 20511274 (Version 1)
Quarter: 2022Q1

REPORT INFORMATION
  Report Type: Spontaneous
  Country: DE (occurrence: DE)
  Receive Date: 20220224
  Receipt Date: 20220224
  Transmission Date: 20220423
  Serious: Yes (Hospitalization, Other)
  Sender: FDA-Public Use
  Company Number: DE-NOVARTISPH-NVSC2022DE040512

PATIENT
  Age: 66 Year
  Sex: Female

DRUGS (1)
  1. ROSUVASTATIN [Suspect]
     Active Substance: ROSUVASTATIN
     Indication: Product used for unknown indication
     Dosage: UNK
     Route: 065
     Dates: start: 20150116

REACTIONS (5)
  - Acute myocardial infarction [Recovered/Resolved with Sequelae]
  - Hypercholesterolaemia [Unknown]
  - Diabetes mellitus [Unknown]
  - Amyloidosis [Unknown]
  - Tobacco abuse [Unknown]

NARRATIVE: CASE EVENT DATE: 20211118
